FAERS Safety Report 23214054 (Version 1)
Quarter: 2023Q4

REPORT INFORMATION
  Report Type: Spontaneous
  Country: TN (occurrence: TN)
  Receive Date: 20231121
  Receipt Date: 20231121
  Transmission Date: 20240110
  Serious: Yes (Other)
  Sender: FDA-Public Use
  Company Number: TN-BEH-2023165379

PATIENT
  Age: 4 Year
  Sex: Female

DRUGS (2)
  1. HUMAN IMMUNOGLOBULIN G [Suspect]
     Active Substance: HUMAN IMMUNOGLOBULIN G
     Indication: Multisystem inflammatory syndrome in children
     Route: 042
  2. HUMAN IMMUNOGLOBULIN G [Suspect]
     Active Substance: HUMAN IMMUNOGLOBULIN G
     Indication: Herpes simplex reactivation

REACTIONS (3)
  - Haemolytic anaemia [Unknown]
  - No adverse event [Unknown]
  - Off label use [Unknown]
